FAERS Safety Report 8449821-9 (Version None)
Quarter: 2012Q2

REPORT INFORMATION
  Report Type: 
  Country: None (occurrence: None)
  Receive Date: 20120620
  Receipt Date: 20120607
  Transmission Date: 20120825
  Serious: Yes (Hospitalization)
  Sender: FDA-Public Use
  Company Number: FI-ELI_LILLY_AND_COMPANY-FI201206002690

PATIENT
  Age: 75 Year
  Sex: Female

DRUGS (3)
  1. OXYCODONE HCL [Concomitant]
     Indication: PAIN
     Dosage: 50 MG, QD
  2. CYMBALTA [Suspect]
     Indication: PAIN
     Dosage: 30 MG, QD
  3. CYMBALTA [Suspect]
     Dosage: 60 MG, QD

REACTIONS (6)
  - TREMOR [None]
  - EXOPHTHALMOS [None]
  - MUSCULOSKELETAL STIFFNESS [None]
  - OCULAR HYPERAEMIA [None]
  - EYE PAIN [None]
  - URINARY RETENTION [None]
